FAERS Safety Report 7363112-9 (Version None)
Quarter: 2011Q1

REPORT INFORMATION
  Report Type: 
  Country: None (occurrence: None)
  Receive Date: 20110321
  Receipt Date: 20100803
  Transmission Date: 20110831
  Serious: Yes (Life-Threatening, Hospitalization, Other)
  Sender: FDA-Public Use
  Company Number: US-BAYER-200939438NA

PATIENT
  Sex: Female
  Weight: 68.182 kg

DRUGS (5)
  1. YAZ [Suspect]
     Dates: start: 20080928, end: 20090401
  2. HYDROCODONE BITARTRATE [Concomitant]
     Dates: start: 20090101
  3. YAZ [Suspect]
     Dosage: UNK UNK, QD
     Dates: start: 20080928, end: 20100201
  4. RANITIDINE [Concomitant]
     Dates: start: 20090101
  5. VICODIN [Concomitant]
     Indication: PAIN
     Dosage: UNK
     Dates: start: 20090501

REACTIONS (10)
  - BILIARY COLIC [None]
  - ABDOMINAL PAIN [None]
  - GALLBLADDER NON-FUNCTIONING [None]
  - ASTHENIA [None]
  - BACK PAIN [None]
  - CHOLELITHIASIS [None]
  - HEPATIC ENZYME INCREASED [None]
  - FATIGUE [None]
  - CHOLECYSTITIS [None]
  - CHOLECYSTITIS CHRONIC [None]
